FAERS Safety Report 8962394 (Version 1)
Quarter: 2012Q4

REPORT INFORMATION
  Report Type: Spontaneous
  Country: GB (occurrence: None)
  Receive Date: 20121206
  Receipt Date: 20121206
  Transmission Date: 20130627
  Serious: Yes (Other)
  Sender: FDA-Public Use
  Company Number: GER/UKI/12/0026905

PATIENT
  Age: 77 Year
  Sex: Male

DRUGS (8)
  1. DONEPEZIL HYDROCHLORIDE [Suspect]
     Indication: DEMENTIA
     Dosage: 5 mg , Oral
     Route: 048
     Dates: start: 20121103, end: 20121113
  2. ADCAL D3 [Concomitant]
  3. ASPIRIN (ACETYLSALICYCLIC) [Concomitant]
  4. CO-CARELDOPA (SINEMET) [Concomitant]
  5. MARCROGOL (MACROGOL) [Concomitant]
  6. MINIHEP (HEPARIN SODIUM) [Concomitant]
  7. PARACETAMOL (PARACETAMOL) [Concomitant]
  8. PROFAFENONE (PROFAFENONE) [Concomitant]

REACTIONS (1)
  - Electrocardiogram PR prolongation [None]
